FAERS Safety Report 5276175-1 (Version None)
Quarter: 2007Q1

REPORT INFORMATION
  Report Type: 
  Country: None (occurrence: None)
  Receive Date: 20070326
  Receipt Date: 20070315
  Transmission Date: 20070707
  Serious: Yes (Death, Hospitalization)
  Sender: FDA-Public Use
  Company Number: FR-SANOFI-SYNTHELABO-A02200700782

PATIENT
  Age: 84 Year
  Sex: Female

DRUGS (5)
  1. DILTIAZEM [Concomitant]
     Route: 048
  2. PRAVASTATIN [Concomitant]
     Dosage: UNK
     Route: 048
  3. ELOXATIN [Suspect]
     Indication: COLON CANCER
     Route: 042
     Dates: start: 20050101, end: 20050101
  4. PREDNISONE [Concomitant]
     Route: 048
  5. RALTITREXED [Suspect]
     Route: 042

REACTIONS (7)
  - DIARRHOEA [None]
  - DYSPHAGIA [None]
  - GUILLAIN-BARRE SYNDROME [None]
  - PARAESTHESIA [None]
  - QUADRIPLEGIA [None]
  - RESPIRATORY FAILURE [None]
  - VOMITING [None]
